FAERS Safety Report 17605007 (Version 1)
Quarter: 2020Q1

REPORT INFORMATION
  Report Type: Spontaneous
  Country: US (occurrence: US)
  Receive Date: 20200331
  Receipt Date: 20200331
  Transmission Date: 20200409
  Serious: Yes (Other)
  Sender: FDA-Public Use
  Company Number: None

PATIENT
  Age: 50 Year
  Sex: Female
  Weight: 63.45 kg

DRUGS (6)
  1. LISINOPRIL. [Concomitant]
     Active Substance: LISINOPRIL
  2. WOMENS 50 GUMMY MULTIVITAMIN [Concomitant]
  3. CARBAMIDE PEROXIDE [Concomitant]
     Active Substance: CARBAMIDE PEROXIDE
  4. GABAPENTIN 100 MG [Suspect]
     Active Substance: GABAPENTIN
     Indication: NEURALGIA
     Dosage: ?          QUANTITY:60 CAPSULE(S);?
     Route: 048
     Dates: start: 20200310, end: 20200312
  5. BENLYSTA [Concomitant]
     Active Substance: BELIMUMAB
  6. AZATHIOPRINE. [Concomitant]
     Active Substance: AZATHIOPRINE

REACTIONS (3)
  - Impaired driving ability [None]
  - Somnolence [None]
  - Depression [None]

NARRATIVE: CASE EVENT DATE: 20200310
